FAERS Safety Report 8557785-2 (Version None)
Quarter: 2012Q3

REPORT INFORMATION
  Report Type: 
  Country: None (occurrence: None)
  Receive Date: 20120801
  Receipt Date: 20120730
  Transmission Date: 20120928
  Serious: Yes (Death)
  Sender: FDA-Public Use
  Company Number: US-ROCHE-1068925

PATIENT
  Sex: Female
  Weight: 43.6 kg

DRUGS (9)
  1. OXYCODONE HCL [Concomitant]
     Indication: PAIN
     Route: 048
  2. KEPPRA [Concomitant]
     Indication: CONVULSION
     Route: 048
  3. AVASTIN [Suspect]
     Indication: PRODUCT USED FOR UNKNOWN INDICATION
  4. OXYCONTIN [Concomitant]
     Indication: PAIN
     Route: 048
  5. PROCHLORPERAZINE [Concomitant]
     Indication: NAUSEA
     Route: 048
  6. SENNA-MINT WAF [Concomitant]
     Route: 048
  7. MIRALAX [Concomitant]
     Indication: CONSTIPATION
  8. DOCUSATE [Concomitant]
     Indication: CONSTIPATION
     Route: 048
  9. CLONAZEPAM [Concomitant]
     Indication: CONVULSION
     Route: 048

REACTIONS (1)
  - METASTATIC MALIGNANT MELANOMA [None]
